FAERS Safety Report 5421493-7 (Version None)
Quarter: 2007Q3

REPORT INFORMATION
  Report Type: 
  Country: None (occurrence: None)
  Receive Date: 20070821
  Receipt Date: 20070809
  Transmission Date: 20080115
  Serious: Yes (Other)
  Sender: FDA-Public Use
  Company Number: AR-PFIZER INC-2007067199

PATIENT
  Sex: Female

DRUGS (6)
  1. CHAMPIX [Suspect]
  2. CARVEDILOL [Concomitant]
  3. GLIOTEN [Concomitant]
  4. ESCITALOPRAM OXALATE [Concomitant]
  5. ALL OTHER THERAPEUTIC PRODUCTS [Concomitant]
  6. LEVOTHYROXINE SODIUM [Concomitant]

REACTIONS (2)
  - SKIN DISORDER [None]
  - URTICARIA [None]
